FAERS Safety Report 10557653 (Version 1)
Quarter: 2014Q4

REPORT INFORMATION
  Report Type: Spontaneous
  Country: US (occurrence: US)
  Receive Date: 20141031
  Receipt Date: 20141031
  Transmission Date: 20150529
  Serious: Yes (Other)
  Sender: FDA-Public Use
  Company Number: US-ASTRAZENECA-2014SE81451

PATIENT
  Sex: Male

DRUGS (2)
  1. BETA BLOCKER [Concomitant]
     Active Substance: UNSPECIFIED INGREDIENT
     Dosage: EVERY OTHER DAY
  2. BRILINTA [Suspect]
     Active Substance: TICAGRELOR
     Indication: ACUTE CORONARY SYNDROME
     Dosage: 180 MG LOADING DOSE
     Route: 048

REACTIONS (1)
  - Sinus arrest [Unknown]
